FAERS Safety Report 5681088-7 (Version None)
Quarter: 2008Q1

REPORT INFORMATION
  Report Type: 
  Country: None (occurrence: None)
  Receive Date: 20080325
  Receipt Date: 20080312
  Transmission Date: 20080703
  Serious: Yes (Death)
  Sender: FDA-Public Use
  Company Number: CERZ-1000102

PATIENT
  Sex: Male
  Weight: 3 kg

DRUGS (3)
  1. CEREZYME [Suspect]
     Indication: GAUCHER'S DISEASE
     Dosage: 200 U, Q2W, INTRAVENOUS
     Route: 042
     Dates: start: 20080207, end: 20080219
  2. DOPAMINE HCL [Concomitant]
  3. FUROSEMIDE [Concomitant]

REACTIONS (3)
  - DISEASE PROGRESSION [None]
  - GAUCHER'S DISEASE [None]
  - MULTI-ORGAN FAILURE [None]
